FAERS Safety Report 9440208 (Version 3)
Quarter: 2013Q3

REPORT INFORMATION
  Report Type: Spontaneous
  Country: JP (occurrence: JP)
  Receive Date: 20130805
  Receipt Date: 20130904
  Transmission Date: 20140515
  Serious: No
  Sender: FDA-Public Use
  Company Number: PHHY2013JP083131

PATIENT
  Age: 60 Year
  Sex: Male
  Weight: 75 kg

DRUGS (2)
  1. DIOVAN [Suspect]
     Indication: HYPERTENSION
     Dosage: 40 MG, DAILY
     Route: 048
     Dates: start: 20091006, end: 20130716
  2. ALOSITOL [Concomitant]
     Indication: HYPERURICAEMIA
     Dosage: 100 MG, DAILY
     Route: 048
     Dates: start: 19930921, end: 20130806

REACTIONS (6)
  - Erythema multiforme [Recovering/Resolving]
  - Eczema [Unknown]
  - Skin exfoliation [Recovered/Resolved]
  - Erythema [Unknown]
  - Red blood cell count decreased [Unknown]
  - Lymphocyte count decreased [Unknown]
